FAERS Safety Report 9287006 (Version 1)
Quarter: 2013Q2

REPORT INFORMATION
  Report Type: Report from Study
  Country: SE (occurrence: SE)
  Receive Date: 20130513
  Receipt Date: 20130513
  Transmission Date: 20140414
  Serious: Yes (Other)
  Sender: FDA-Public Use
  Company Number: SE-ABBOTT-13P-150-1045730-00

PATIENT
  Age: 38 Year
  Sex: Male

DRUGS (1)
  1. HUMIRA [Suspect]
     Indication: PSORIATIC ARTHROPATHY
     Dosage: EVERY 2-3 WEEKS
     Route: 058
     Dates: start: 20100110

REACTIONS (3)
  - Multiple sclerosis [Unknown]
  - Multiple sclerosis [Unknown]
  - Urinary retention [Unknown]
